FAERS Safety Report 8875779 (Version 1)
Quarter: 2012Q4

REPORT INFORMATION
  Report Type: 
  Country: BR (occurrence: BR)
  Receive Date: 20121030
  Receipt Date: 20121030
  Transmission Date: 20130627
  Serious: Yes (Other)
  Sender: FDA-Public Use
  Company Number: PHHY2012BR097195

PATIENT
  Age: 75 None
  Sex: Female
  Weight: 93 kg

DRUGS (1)
  1. DIOVAN [Suspect]
     Indication: HYPERTENSION
     Dosage: 1 DF (320 mg), A day
     Route: 048

REACTIONS (4)
  - Cataract [Recovering/Resolving]
  - Wheezing [Not Recovered/Not Resolved]
  - Blood pressure inadequately controlled [Recovered/Resolved]
  - Cardiomegaly [Not Recovered/Not Resolved]
